FAERS Safety Report 15581596 (Version 2)
Quarter: 2021Q2

REPORT INFORMATION
  Report Type: Spontaneous
  Country: US (occurrence: US)
  Receive Date: 20181102
  Receipt Date: 20210521
  Transmission Date: 20210716
  Serious: No
  Sender: FDA-Public Use
  Company Number: US-RADIUS HEALTH INC.-2018US002574

PATIENT
  Sex: Female

DRUGS (3)
  1. TYMLOS [Suspect]
     Active Substance: ABALOPARATIDE
     Indication: OSTEOPOROSIS POSTMENOPAUSAL
     Dosage: 80 MCG DAILY
     Route: 058
     Dates: start: 201710, end: 20181014
  2. TYMLOS [Suspect]
     Active Substance: ABALOPARATIDE
     Indication: OSTEOPOROSIS
     Dosage: 80 MCG DAILY
     Route: 058
     Dates: start: 20180127
  3. TYMLOS [Suspect]
     Active Substance: ABALOPARATIDE
     Dosage: 80 MCG DAILY
     Route: 058
     Dates: start: 20180127

REACTIONS (7)
  - Fatigue [Not Recovered/Not Resolved]
  - Back pain [Unknown]
  - Red blood cell count decreased [Not Recovered/Not Resolved]
  - Weight increased [Not Recovered/Not Resolved]
  - Urinary tract infection [Unknown]
  - Renal disorder [Unknown]
  - Product dose omission issue [Unknown]
